FAERS Safety Report 8831696 (Version 1)
Quarter: 2012Q4

REPORT INFORMATION
  Report Type: 
  Country: US (occurrence: US)
  Receive Date: 20121009
  Receipt Date: 20121009
  Transmission Date: 20130627
  Serious: Yes (Other)
  Sender: FDA-Public Use
  Company Number: US-ROCHE-1134023

PATIENT
  Age: 56 Year
  Sex: Female

DRUGS (6)
  1. RITUXAN [Suspect]
     Indication: THROMBOCYTOPENIA
     Route: 065
     Dates: start: 20010301
  2. RITUXAN [Suspect]
     Indication: OFF LABEL USE
  3. BENADRYL [Concomitant]
     Route: 042
  4. TYLENOL [Concomitant]
     Route: 048
  5. SODIUM CHLORIDE [Concomitant]
     Route: 065
  6. HEPARIN [Concomitant]
     Route: 065

REACTIONS (5)
  - Pancytopenia [Unknown]
  - Mouth haemorrhage [Recovered/Resolved]
  - Stomatitis [Unknown]
  - Generalised erythema [Unknown]
  - Cardiac murmur [Unknown]
